FAERS Safety Report 18769840 (Version 1)
Quarter: 2021Q1

REPORT INFORMATION
  Report Type: Spontaneous
  Country: SG (occurrence: SG)
  Receive Date: 20210121
  Receipt Date: 20210121
  Transmission Date: 20210419
  Serious: Yes (Other)
  Sender: FDA-Public Use
  Company Number: SG-LUPIN PHARMACEUTICALS INC.-2020-01817

PATIENT
  Age: 79 Year
  Sex: Male

DRUGS (6)
  1. DARUNAVIR [Suspect]
     Active Substance: DARUNAVIR
     Indication: HIV INFECTION
     Dosage: UNK
     Route: 065
  2. LAMIVUDINE. [Suspect]
     Active Substance: LAMIVUDINE
     Indication: HIV INFECTION
     Dosage: UNK
     Route: 065
  3. FOSCARNET [Suspect]
     Active Substance: FOSCARNET
     Indication: GENITAL HERPES SIMPLEX
     Dosage: UNK, QD (1.5?1.8G DAILY FOR TWO WEEKS)
     Route: 042
  4. VALACICLOVIR [Suspect]
     Active Substance: VALACYCLOVIR HYDROCHLORIDE
     Indication: GENITAL HERPES SIMPLEX
     Dosage: UNK, BID (0.5?1 G TWICE DAILY)
     Route: 048
  5. TENOFOVIR [Suspect]
     Active Substance: TENOFOVIR
     Indication: HIV INFECTION
     Dosage: UNK
     Route: 065
  6. IMIQUIMOD. [Concomitant]
     Active Substance: IMIQUIMOD
     Indication: GENITAL HERPES SIMPLEX
     Dosage: 2 GRAM, QD (2 GRAM DAILY; SCHEDULED FOR 21 DAYS)
     Route: 061

REACTIONS (2)
  - Immune reconstitution inflammatory syndrome [Unknown]
  - Pathogen resistance [Unknown]
